FAERS Safety Report 14108151 (Version 1)
Quarter: 2017Q4

REPORT INFORMATION
  Report Type: Spontaneous
  Country: US (occurrence: US)
  Receive Date: 20171019
  Receipt Date: 20171019
  Transmission Date: 20180321
  Serious: No
  Sender: FDA-Public Use
  Company Number: US-BAYER-2017-200302

PATIENT
  Age: 91 Year
  Sex: Male
  Weight: 65.99 kg

DRUGS (3)
  1. ACID REDUCER [Concomitant]
     Dosage: UNK
  2. MIRALAX [Suspect]
     Active Substance: POLYETHYLENE GLYCOL 3350
     Indication: GASTROINTESTINAL DISORDER
     Dosage: 0.5 DF, UNK
     Route: 048
  3. ASPIRIN BP [Concomitant]
     Dosage: UNK

REACTIONS (1)
  - Product use issue [Unknown]
